FAERS Safety Report 16464635 (Version 5)
Quarter: 2019Q3

REPORT INFORMATION
  Report Type: Spontaneous
  Country: JP (occurrence: JP)
  Receive Date: 20190621
  Receipt Date: 20190917
  Transmission Date: 20191004
  Serious: Yes (Hospitalization, Other)
  Sender: FDA-Public Use
  Company Number: PHJP2019JP004749

PATIENT
  Age: 83 Year
  Sex: Female

DRUGS (2)
  1. EXELON PATCH [Suspect]
     Active Substance: RIVASTIGMINE
     Dosage: 9.5 MG, QD (PATCH 10 CM2, 18 MG RIVASTIGMINE BASE)
     Route: 062
  2. EXELON PATCH [Suspect]
     Active Substance: RIVASTIGMINE
     Indication: DEMENTIA ALZHEIMER^S TYPE
     Dosage: 4.6 MG, QD (PATCH 5 (CM2), 09 MG RIVASTIGMINE BASE)
     Route: 062

REACTIONS (4)
  - Intestinal obstruction [Recovered/Resolved]
  - Hernia [Recovered/Resolved]
  - Dementia Alzheimer^s type [Unknown]
  - Somnolence [Recovered/Resolved]
